FAERS Safety Report 9103947 (Version 2)
Quarter: 2013Q1

REPORT INFORMATION
  Report Type: Spontaneous
  Country: US (occurrence: US)
  Receive Date: 20130219
  Receipt Date: 20130306
  Transmission Date: 20140127
  Serious: Yes (Death)
  Sender: FDA-Public Use
  Company Number: US-GILEAD-2013-0070022

PATIENT
  Sex: Female

DRUGS (11)
  1. LETAIRIS [Suspect]
     Indication: PULMONARY HYPERTENSION
     Dosage: 5 MG, QD
     Dates: start: 20130125
  2. ALENDRONATE [Concomitant]
  3. AMLODIPINE [Concomitant]
  4. FUROSEMIDE [Concomitant]
  5. POTASSIUM [Concomitant]
  6. PREDNISONE [Concomitant]
  7. SERTRALINE [Concomitant]
  8. SILDENAFIL [Concomitant]
  9. SIMVASTATIN [Concomitant]
  10. ZOLPIDEM [Concomitant]
  11. ECOTRIN [Concomitant]

REACTIONS (1)
  - Pneumonia [Fatal]
